FAERS Safety Report 6642663-6 (Version None)
Quarter: 2010Q1

REPORT INFORMATION
  Report Type: 
  Country: None (occurrence: None)
  Receive Date: 20100316
  Receipt Date: 20100301
  Transmission Date: 20100710
  Serious: Yes (Hospitalization)
  Sender: FDA-Public Use
  Company Number: ACO_00649_2010

PATIENT
  Age: 19 Year
  Sex: Female

DRUGS (1)
  1. SIRDALUD /00740702/ (SIRDALUD MR - TIZANIDINE HYDROCHLORIDE) 6 MG (NOT [Suspect]
     Indication: DRUG USE FOR UNKNOWN INDICATION
     Dosage: ([6 MG X 20 TIMES] 120 MG ORAL)
     Route: 048

REACTIONS (4)
  - DRUG TOXICITY [None]
  - HYPOTENSION [None]
  - SINUS BRADYCARDIA [None]
  - SOMNOLENCE [None]
